FAERS Safety Report 20976945 (Version 1)
Quarter: 2022Q2

REPORT INFORMATION
  Report Type: Spontaneous
  Country: US (occurrence: None)
  Receive Date: 20220617
  Receipt Date: 20220617
  Transmission Date: 20220721
  Serious: Yes (Other)
  Sender: FDA-Public Use
  Company Number: None

PATIENT
  Age: 57 Year
  Sex: Female
  Weight: 78.75 kg

DRUGS (2)
  1. CYCLOSPORINE [Suspect]
     Active Substance: CYCLOSPORINE
     Indication: Dry eye
     Dosage: FREQUENCY : TWICE A DAY;?
     Route: 061
  2. CYCLOSPORINE EMULSION 0.05% [Concomitant]
     Dates: start: 20220509, end: 20220616

REACTIONS (5)
  - Hypersensitivity [None]
  - Burning sensation [None]
  - Discomfort [None]
  - Discharge [None]
  - Lacrimation increased [None]

NARRATIVE: CASE EVENT DATE: 20220509
